FAERS Safety Report 13385181 (Version 1)
Quarter: 2017Q1

REPORT INFORMATION
  Report Type: Spontaneous
  Country: US (occurrence: US)
  Receive Date: 20170330
  Receipt Date: 20170330
  Transmission Date: 20170429
  Serious: Yes (Hospitalization)
  Sender: FDA-Public Use
  Company Number: None

PATIENT
  Age: 16 Year
  Sex: Female

DRUGS (12)
  1. ZYRTEC [Concomitant]
     Active Substance: CETIRIZINE HYDROCHLORIDE
  2. GABAPENTIN. [Concomitant]
     Active Substance: GABAPENTIN
  3. JADENU [Suspect]
     Active Substance: DEFERASIROX
     Indication: LEUKAEMIA
     Route: 048
     Dates: start: 20170207
  4. ERGOCALCIFER [Concomitant]
  5. POTASSIUM [Concomitant]
     Active Substance: POTASSIUM
  6. BACLOFEN. [Concomitant]
     Active Substance: BACLOFEN
  7. MULTNORETHIN [Concomitant]
  8. LEXAPRO [Concomitant]
     Active Substance: ESCITALOPRAM OXALATE
  9. LORAZEPAM. [Concomitant]
     Active Substance: LORAZEPAM
  10. TRAZODONE [Concomitant]
     Active Substance: TRAZODONE HYDROCHLORIDE
  11. FETANYL [Concomitant]
  12. ONDANSETRON [Concomitant]
     Active Substance: ONDANSETRON

REACTIONS (1)
  - Hospitalisation [None]

NARRATIVE: CASE EVENT DATE: 201703
